FAERS Safety Report 9881110 (Version 1)
Quarter: 2014Q1

REPORT INFORMATION
  Report Type: Spontaneous
  Country: US (occurrence: US)
  Receive Date: 20140207
  Receipt Date: 20140207
  Transmission Date: 20141002
  Serious: No
  Sender: FDA-Public Use
  Company Number: US-PFIZER INC-2014031043

PATIENT
  Age: 64 Year
  Sex: Male
  Weight: 113 kg

DRUGS (2)
  1. CELEBREX [Suspect]
     Indication: ARTHRITIS
     Dosage: 200 MG, DAILY
     Route: 048
  2. NORVASC [Concomitant]
     Indication: HYPERTENSION
     Dosage: 2.5 MG, DAILY

REACTIONS (1)
  - Sleep apnoea syndrome [Unknown]
